FAERS Safety Report 24526021 (Version 3)
Quarter: 2025Q3

REPORT INFORMATION
  Report Type: Spontaneous
  Country: EU (occurrence: EU)
  Receive Date: 20241021
  Receipt Date: 20250809
  Transmission Date: 20251020
  Serious: Yes (Hospitalization, Other)
  Sender: ALEXION PHARMACEUTICALS
  Company Number: EU-ASTRAZENECA-202409EEA009599DE

PATIENT
  Sex: Female

DRUGS (2)
  1. FASENRA [Suspect]
     Active Substance: BENRALIZUMAB
     Indication: Asthma
  2. FASENRA [Suspect]
     Active Substance: BENRALIZUMAB

REACTIONS (4)
  - Deep vein thrombosis [Unknown]
  - Pulmonary embolism [Unknown]
  - Electrocardiogram abnormal [Unknown]
  - Dyspnoea [Unknown]
